FAERS Safety Report 4313028-7 (Version None)
Quarter: 2004Q1

REPORT INFORMATION
  Report Type: 
  Country: None (occurrence: None)
  Receive Date: 20040304
  Receipt Date: 20040227
  Transmission Date: 20041129
  Serious: Yes (Other)
  Sender: FDA-Public Use
  Company Number: 200314830BCC

PATIENT
  Age: 45 Year
  Sex: Female
  Weight: 68.0396 kg

DRUGS (1)
  1. ALEVE COLD AND SINUS [Suspect]
     Indication: NASOPHARYNGITIS
     Dosage: 1760 MG, TOTAL DAILY, ORAL
     Route: 048
     Dates: start: 20031226, end: 20031227

REACTIONS (7)
  - CHEST PAIN [None]
  - HEART RATE INCREASED [None]
  - INSOMNIA [None]
  - PHARYNGOLARYNGEAL PAIN [None]
  - SENSATION OF FOREIGN BODY [None]
  - SOMNOLENCE [None]
  - WHEEZING [None]
